FAERS Safety Report 15855878 (Version 2)
Quarter: 2019Q1

REPORT INFORMATION
  Report Type: Spontaneous
  Country: US (occurrence: US)
  Receive Date: 20190122
  Receipt Date: 20190201
  Transmission Date: 20190417
  Serious: Yes (Other)
  Sender: FDA-Public Use
  Company Number: US-AMGEN-USASP2019009535

PATIENT
  Age: 81 Year
  Sex: Female
  Weight: 80.27 kg

DRUGS (3)
  1. DECITABINE. [Concomitant]
     Active Substance: DECITABINE
  2. NEUPOGEN [Suspect]
     Active Substance: FILGRASTIM
     Indication: NEUTROPENIA
     Dosage: 480 MUG, UNK
     Route: 058
     Dates: start: 20180525, end: 20180607
  3. PROCRIT [Suspect]
     Active Substance: ERYTHROPOIETIN
     Indication: BLOOD COUNT ABNORMAL
     Dosage: 80000 UNIT, UNK
     Route: 065
     Dates: start: 20180529

REACTIONS (3)
  - Hypersensitivity vasculitis [Recovered/Resolved]
  - Dyspnoea [Unknown]
  - Palpitations [Unknown]

NARRATIVE: CASE EVENT DATE: 201805
